FAERS Safety Report 8382333-X (Version None)
Quarter: 2012Q2

REPORT INFORMATION
  Report Type: 
  Country: None (occurrence: None)
  Receive Date: 20120524
  Receipt Date: 20120510
  Transmission Date: 20120825
  Serious: Yes (Hospitalization)
  Sender: FDA-Public Use
  Company Number: AU-JNJFOC-20111100075

PATIENT
  Sex: Male
  Weight: 82.95 kg

DRUGS (17)
  1. BISOPROLOL FUMARATE [Concomitant]
     Indication: DEVICE MALFUNCTION
     Route: 048
     Dates: start: 20091201
  2. VASELINE [Concomitant]
     Indication: LIP ULCERATION
     Route: 061
     Dates: start: 20110927, end: 20111130
  3. SIMVASTATIN [Concomitant]
     Indication: HYPERCHOLESTEROLAEMIA
     Route: 048
     Dates: start: 19991101
  4. GOSERELIN ACETATE [Concomitant]
     Route: 058
     Dates: start: 20080701
  5. ASPIRIN [Concomitant]
     Indication: ISCHAEMIC HEART DISEASE PROPHYLAXIS
     Route: 048
  6. METFORMIN HCL [Concomitant]
     Indication: TYPE 2 DIABETES MELLITUS
     Route: 048
     Dates: start: 20100601, end: 20111030
  7. RAMIPRIL [Concomitant]
     Indication: DEVICE MALFUNCTION
     Route: 048
     Dates: start: 20091201
  8. ABIRATERONE ACETATE [Suspect]
     Route: 048
     Dates: start: 20111201
  9. WARFARIN SODIUM [Concomitant]
     Indication: CEREBROVASCULAR ACCIDENT
     Route: 048
     Dates: start: 20000101, end: 20111001
  10. AMIODARONE HYDROCHLORIDE [Concomitant]
     Indication: DEVICE MALFUNCTION
     Route: 048
     Dates: start: 20091201
  11. ABIRATERONE ACETATE [Suspect]
     Indication: PROSTATE CANCER METASTATIC
     Route: 048
     Dates: start: 20090910, end: 20111030
  12. ALLOPURINOL [Concomitant]
     Indication: GOUT
     Route: 048
     Dates: start: 19991101
  13. GOSERELIN ACETATE [Concomitant]
     Indication: PROSTATE CANCER
     Route: 058
     Dates: start: 20090910
  14. AMIODARONE HYDROCHLORIDE [Concomitant]
     Indication: ARRHYTHMIA
     Route: 048
     Dates: start: 20091201
  15. GLICLAZIDE [Concomitant]
     Indication: TYPE 2 DIABETES MELLITUS
     Route: 048
     Dates: start: 20091201, end: 20111031
  16. PREDNISONE TAB [Suspect]
     Indication: PROSTATE CANCER METASTATIC
     Route: 048
     Dates: start: 20090910
  17. WARFARIN SODIUM [Concomitant]
     Indication: ATRIAL FIBRILLATION
     Route: 048
     Dates: start: 20000101, end: 20111001

REACTIONS (1)
  - ARTHRITIS BACTERIAL [None]
